FAERS Safety Report 20549089 (Version 1)
Quarter: 2022Q1

REPORT INFORMATION
  Report Type: Spontaneous
  Country: US (occurrence: US)
  Receive Date: 20220303
  Receipt Date: 20220303
  Transmission Date: 20220423
  Serious: No
  Sender: FDA-Public Use
  Company Number: US-BIOMARINAP-US-2022-141738

PATIENT
  Age: 55 Year
  Sex: Female

DRUGS (1)
  1. KUVAN [Suspect]
     Active Substance: SAPROPTERIN DIHYDROCHLORIDE
     Indication: Product used for unknown indication
     Dosage: UNK
     Route: 048
     Dates: start: 20220224

REACTIONS (4)
  - Dizziness [Not Recovered/Not Resolved]
  - Lethargy [Unknown]
  - Cognitive disorder [Unknown]
  - Irritability [Unknown]

NARRATIVE: CASE EVENT DATE: 20220224
